FAERS Safety Report 9741600 (Version 4)
Quarter: 2015Q1

REPORT INFORMATION
  Report Type: Report from Study
  Country: BR (occurrence: BR)
  Receive Date: 20131210
  Receipt Date: 20150313
  Transmission Date: 20150721
  Serious: Yes (Disabling)
  Sender: FDA-Public Use
  Company Number: BR-ROCHE-1312097

PATIENT
  Age: 60 Year
  Sex: Female
  Weight: 48 kg

DRUGS (7)
  1. CILOSTAZOL. [Concomitant]
     Active Substance: CILOSTAZOL
  2. CLOPIDOGREL [Concomitant]
     Active Substance: CLOPIDOGREL BISULFATE
  3. AAS [Concomitant]
     Active Substance: ASPIRIN
  4. SIMVASTATIN. [Concomitant]
     Active Substance: SIMVASTATIN
  5. MABTHERA [Suspect]
     Active Substance: RITUXIMAB
     Indication: RHEUMATOID ARTHRITIS
     Dosage: IN MAR/2013, SHE RECEIVED THE LAST DOSE OF RITUXIMAB
     Route: 042
     Dates: start: 201208
  6. ARAVA [Suspect]
     Active Substance: LEFLUNOMIDE
     Indication: RHEUMATOID ARTHRITIS
     Route: 065
  7. MONOCORDIL [Concomitant]
     Active Substance: ISOSORBIDE MONONITRATE

REACTIONS (7)
  - Impaired self-care [Not Recovered/Not Resolved]
  - Urinary tract infection [Unknown]
  - Arthritis [Not Recovered/Not Resolved]
  - Hypokinesia [Not Recovered/Not Resolved]
  - Rheumatoid arthritis [Not Recovered/Not Resolved]
  - Weight decreased [Not Recovered/Not Resolved]
  - Eczema nummular [Unknown]

NARRATIVE: CASE EVENT DATE: 20131111
